FAERS Safety Report 23570735 (Version 1)
Quarter: 2024Q1

REPORT INFORMATION
  Report Type: Spontaneous
  Country: MX (occurrence: MX)
  Receive Date: 20240227
  Receipt Date: 20240227
  Transmission Date: 20240410
  Serious: Yes (Other)
  Sender: FDA-Public Use
  Company Number: MX-JNJFOC-20240261789

PATIENT
  Age: 3 Decade
  Sex: Female
  Weight: 52 kg

DRUGS (1)
  1. MACITENTAN [Suspect]
     Active Substance: MACITENTAN
     Indication: Pulmonary arterial hypertension
     Dosage: LAST DRUG APPLICATION: 11-JAN-2024
     Route: 048
     Dates: start: 20231001

REACTIONS (1)
  - Surgery [Unknown]
